FAERS Safety Report 23428667 (Version 2)
Quarter: 2024Q1

REPORT INFORMATION
  Report Type: Spontaneous
  Country: HU (occurrence: HU)
  Receive Date: 20240122
  Receipt Date: 20240221
  Transmission Date: 20240410
  Serious: Yes (Other)
  Sender: FDA-Public Use
  Company Number: HU-ELI_LILLY_AND_COMPANY-HU202401007210

PATIENT
  Age: 50 Year
  Sex: Female

DRUGS (2)
  1. TALTZ [Suspect]
     Active Substance: IXEKIZUMAB
     Indication: Psoriasis
     Dosage: 80 MG, MONTHLY (1/M)
     Route: 058
     Dates: start: 201905, end: 20231003
  2. RILMENIDIN TEVA [RILMENIDINE PHOSPHATE] [Concomitant]
     Indication: Product used for unknown indication
     Dosage: 1 DOSAGE FORM, DAILY
     Route: 065

REACTIONS (5)
  - Breast cancer metastatic [Recovering/Resolving]
  - Renal neoplasm [Unknown]
  - Lymphadenopathy [Recovering/Resolving]
  - Road traffic accident [Unknown]
  - Breast injury [Unknown]

NARRATIVE: CASE EVENT DATE: 20230601
